FAERS Safety Report 21554064 (Version 1)
Quarter: 2022Q4

REPORT INFORMATION
  Report Type: Spontaneous
  Country: GB (occurrence: None)
  Receive Date: 20221104
  Receipt Date: 20221104
  Transmission Date: 20230113
  Serious: Yes (Other)
  Sender: FDA-Public Use
  Company Number: GB-MHRA-MED-202211011607021770-VSCKF

PATIENT
  Age: 51 Year
  Sex: Male

DRUGS (1)
  1. OBINUTUZUMAB [Suspect]
     Active Substance: OBINUTUZUMAB
     Indication: Product used for unknown indication
     Dosage: 100MG/100ML THEN NEXT DOSE 900MG/250ML; ;
     Route: 065
     Dates: start: 20220926

REACTIONS (7)
  - Dyspnoea [Unknown]
  - Body temperature increased [Unknown]
  - Chest discomfort [Unknown]
  - Headache [Unknown]
  - Neck pain [Unknown]
  - Chills [Unknown]
  - Nausea [Unknown]

NARRATIVE: CASE EVENT DATE: 20221026
